FAERS Safety Report 10404353 (Version 2)
Quarter: 2014Q2

REPORT INFORMATION
  Report Type: Spontaneous
  Country: US (occurrence: None)
  Receive Date: 20140228
  Receipt Date: 20140530
  Transmission Date: 20141212
  Serious: No
  Sender: FDA-Public Use
  Company Number: 225688 LEO

PATIENT
  Age: 58 Year
  Sex: Female

DRUGS (1)
  1. PICATO [Suspect]
     Indication: ACTINIC KERATOSIS
     Route: 061
     Dates: start: 20140112, end: 20140112

REACTIONS (8)
  - Application site burn [None]
  - Application site dryness [None]
  - Burns second degree [None]
  - Application site vesicles [None]
  - Application site discharge [None]
  - Application site erythema [None]
  - Incorrect drug administration duration [None]
  - Application site scab [None]
